FAERS Safety Report 7801434-5 (Version None)
Quarter: 2011Q4

REPORT INFORMATION
  Report Type: 
  Country: None (occurrence: None)
  Receive Date: 20111006
  Receipt Date: 20111006
  Transmission Date: 20120403
  Serious: Yes (Hospitalization)
  Sender: FDA-Public Use
  Company Number: None

PATIENT
  Age: 86 Year
  Sex: Male
  Weight: 68.1 kg

DRUGS (16)
  1. LOVENOX [Suspect]
     Indication: THROMBOSIS PROPHYLAXIS
     Dosage: 40MG QD X WEEK 4 DAILY SQ/PO RECENT
     Route: 048
  2. TYLENOL-500 [Concomitant]
  3. REQUIP [Concomitant]
  4. LOVASTATIN [Concomitant]
  5. VIT B12 [Concomitant]
  6. ASPIRIN [Suspect]
     Dosage: 81MG DAILY PO CHRONIC
     Route: 048
  7. MIRALAX [Concomitant]
  8. FLOMAX [Concomitant]
  9. NORVASC [Concomitant]
  10. CLARITIN [Concomitant]
  11. FINASTERIDE [Concomitant]
  12. SENOKAT [Concomitant]
  13. TIMOLOL [Concomitant]
  14. SENOKOT [Concomitant]
  15. PROTONIX [Concomitant]
  16. AGGRENOX [Suspect]
     Dosage: 1 CAPSULE BID PO CHRONIC
     Route: 048

REACTIONS (7)
  - OESOPHAGITIS ULCERATIVE [None]
  - URINARY TRACT INFECTION [None]
  - HAEMOGLOBIN DECREASED [None]
  - INCONTINENCE [None]
  - HAEMATEMESIS [None]
  - DIZZINESS [None]
  - HAEMORRHAGE [None]
